FAERS Safety Report 7264807-8 (Version None)
Quarter: 2011Q1

REPORT INFORMATION
  Report Type: 
  Country: None (occurrence: None)
  Receive Date: 20110131
  Receipt Date: 20110124
  Transmission Date: 20110831
  Serious: Yes (Hospitalization, Other)
  Sender: FDA-Public Use
  Company Number: CA-US-EMD SERONO, INC.-7012348

PATIENT
  Sex: Female

DRUGS (9)
  1. REBIF [Suspect]
     Indication: MULTIPLE SCLEROSIS
     Dates: start: 20100715, end: 20110112
  2. LYRICA [Concomitant]
  3. SYNTHROID [Concomitant]
  4. VITAMIN D [Concomitant]
  5. VITAMIN B [Concomitant]
  6. REACTINE [Concomitant]
  7. FUROSEMIDE [Concomitant]
  8. MULTI-VITAMINS [Concomitant]
  9. COD LIVER OIL [Concomitant]

REACTIONS (20)
  - DEPRESSED MOOD [None]
  - DRUG INEFFECTIVE [None]
  - MUSCLE SPASMS [None]
  - BURNING SENSATION [None]
  - INJECTION SITE HAEMATOMA [None]
  - INFLUENZA LIKE ILLNESS [None]
  - HYPOAESTHESIA [None]
  - FATIGUE [None]
  - INAPPROPRIATE SCHEDULE OF DRUG ADMINISTRATION [None]
  - PLASMAPHERESIS [None]
  - MYELITIS TRANSVERSE [None]
  - INJECTION SITE ERYTHEMA [None]
  - BACK PAIN [None]
  - HEADACHE [None]
  - MULTIPLE SCLEROSIS RELAPSE [None]
  - GAIT DISTURBANCE [None]
  - UNEVALUABLE EVENT [None]
  - INJECTION SITE REACTION [None]
  - INJECTION SITE PAIN [None]
  - PAIN [None]
